FAERS Safety Report 5885868-4 (Version None)
Quarter: 2008Q3

REPORT INFORMATION
  Report Type: 
  Country: None (occurrence: None)
  Receive Date: 20080917
  Receipt Date: 20080815
  Transmission Date: 20090109
  Serious: No
  Sender: FDA-Public Use
  Company Number: US-BAYER-200831482NA

PATIENT

DRUGS (1)
  1. ULTRAVIST (PHARMACY BULK) [Suspect]
     Indication: DRUG USE FOR UNKNOWN INDICATION

REACTIONS (2)
  - NASAL CONGESTION [None]
  - SNEEZING [None]
